FAERS Safety Report 17652311 (Version 1)
Quarter: 2020Q2

REPORT INFORMATION
  Report Type: Spontaneous
  Country: DK (occurrence: DK)
  Receive Date: 20200409
  Receipt Date: 20200409
  Transmission Date: 20200713
  Serious: Yes (Hospitalization)
  Sender: FDA-Public Use
  Company Number: DK-TEVA-2020-DK-1220522

PATIENT
  Age: 60 Year
  Sex: Male

DRUGS (18)
  1. BRICANYL [Concomitant]
     Active Substance: TERBUTALINE SULFATE
     Indication: ASTHMA
     Dosage: STRENGTH: 0.5 MG / DOSE
     Route: 055
     Dates: start: 20191025
  2. SPIRIVA RESPIMAT [Concomitant]
     Active Substance: TIOTROPIUM BROMIDE
     Indication: ASTHMA
     Dosage: STYRKE: 2,5 MIKROGRAM
     Route: 055
     Dates: start: 20180628
  3. FLUTIFORM [Concomitant]
     Active Substance: FLUTICASONE PROPIONATE\FORMOTEROL FUMARATE
     Indication: ASTHMA
     Dosage: STRENGTH: 250 + 10 MICROGRAMS, 4 DOSAGE FORM
     Route: 055
     Dates: start: 20180110
  4. KALEORID [Concomitant]
     Active Substance: POTASSIUM CHLORIDE
     Indication: MINERAL SUPPLEMENTATION
     Dosage: 1500 MG
     Route: 048
     Dates: start: 20190926
  5. ZARATOR [Concomitant]
     Active Substance: ATORVASTATIN CALCIUM
     Indication: HYPERCHOLESTEROLAEMIA
     Dosage: 80 MG
     Route: 048
     Dates: start: 20190504
  6. METOPROLOLSUCCINAT ^HEXAL^ [Concomitant]
     Active Substance: METOPROLOL SUCCINATE
     Indication: HYPERTENSION
     Dosage: 25 MG
     Route: 048
     Dates: start: 20190405
  7. XYZAL [Concomitant]
     Active Substance: LEVOCETIRIZINE DIHYDROCHLORIDE
     Indication: HYPERSENSITIVITY
     Dosage: 5 MG
     Route: 048
     Dates: start: 20180409
  8. AVAMYS [Concomitant]
     Active Substance: FLUTICASONE FUROATE
     Indication: RHINITIS ALLERGIC
     Dosage: STRENGTH: 27.5 MICROGRAMS, 1 DOSAGE FORMS
     Route: 045
     Dates: start: 20180703
  9. NASONEX [Concomitant]
     Active Substance: MOMETASONE FUROATE
     Indication: NASAL POLYPS
     Dosage: 4 DOSAGE FORMS
     Route: 045
     Dates: start: 20191218
  10. BRILIQUE [Concomitant]
     Active Substance: TICAGRELOR
     Indication: INTRACARDIAC THROMBUS
     Dosage: STYRKE: 90 MG
     Route: 048
     Dates: start: 20190504
  11. KLORZOXAZON ^DAK^ [Concomitant]
     Active Substance: CHLORZOXAZONE
     Indication: MYALGIA
     Dosage: STYRKE: 250 MG
     Route: 048
     Dates: start: 20191122
  12. UNIKALK BASIC [Concomitant]
     Indication: MINERAL SUPPLEMENTATION
     Dosage: DOSAGE: UNKNOWN. STRENGTH: UNKNOWN.
     Route: 048
  13. NORVASC [Concomitant]
     Active Substance: AMLODIPINE BESYLATE
     Indication: ANGINA PECTORIS
     Dosage: 5 MG
     Route: 048
     Dates: start: 20190504
  14. EFEXOR DEPOT [Concomitant]
     Active Substance: VENLAFAXINE HYDROCHLORIDE
     Indication: DEPRESSION
     Dosage: 75 MG
     Route: 048
     Dates: start: 20171128
  15. PANTOLOC [Concomitant]
     Active Substance: PANTOPRAZOLE SODIUM
     Indication: PROPHYLAXIS AGAINST GASTROINTESTINAL ULCER
     Dosage: 20 MG
     Route: 048
     Dates: start: 20200311
  16. SAPIMOL [Suspect]
     Active Substance: ALBUTEROL SULFATE\IPRATROPIUM BROMIDE
     Indication: ASTHMA
     Dosage: STRENGTH: 2.5 + 0.5 MG / DOSE, 1 DOSAGE FORM
     Route: 055
     Dates: start: 20200309, end: 20200311
  17. MONTELUKAST ^2CARE4^ [Concomitant]
     Indication: ASTHMA
     Dosage: 10 MG
     Route: 048
     Dates: start: 20180628
  18. LOSARTANKALIUM/HYDROCHLORTHIAZID ^KRKA^ [Concomitant]
     Indication: HYPERTENSION
     Dosage: STRENGTH:  100 + 25 MG, 1 DOSAGE FORM
     Route: 048
     Dates: start: 20190405

REACTIONS (2)
  - Blood lactic acid increased [Recovering/Resolving]
  - Metabolic acidosis [Recovering/Resolving]

NARRATIVE: CASE EVENT DATE: 20200309
